FAERS Safety Report 10663010 (Version 1)
Quarter: 2014Q4

REPORT INFORMATION
  Report Type: Spontaneous
  Country: US (occurrence: None)
  Receive Date: 20141208
  Receipt Date: 20141208
  Transmission Date: 20150529
  Serious: No
  Sender: FDA-Public Use
  Company Number: 2014TUS007452

PATIENT
  Age: 60 Year
  Sex: Female

DRUGS (5)
  1. DEPAKOTE [Concomitant]
     Active Substance: DIVALPROEX SODIUM
  2. BRINTELLIX [Suspect]
     Active Substance: VORTIOXETINE HYDROBROMIDE
     Indication: MAJOR DEPRESSION
     Route: 048
     Dates: start: 20140630, end: 20140724
  3. PROPRANOLOL [Concomitant]
     Active Substance: PROPRANOLOL\PROPRANOLOL HYDROCHLORIDE
  4. BRINTELLIX [Suspect]
     Active Substance: VORTIOXETINE HYDROBROMIDE
     Indication: DYSTHYMIC DISORDER
     Route: 048
     Dates: start: 20140630, end: 20140724
  5. REMERON [Concomitant]
     Active Substance: MIRTAZAPINE

REACTIONS (2)
  - Anger [None]
  - Agitation [None]

NARRATIVE: CASE EVENT DATE: 20140714
